FAERS Safety Report 6177437-6 (Version None)
Quarter: 2009Q2

REPORT INFORMATION
  Report Type: 
  Country: None (occurrence: None)
  Receive Date: 20090504
  Receipt Date: 20090423
  Transmission Date: 20091009
  Serious: Yes (Other)
  Sender: FDA-Public Use
  Company Number: US-BAYER-200916811NA

PATIENT
  Age: 76 Year
  Sex: Male

DRUGS (1)
  1. LEUKINE [Suspect]
     Indication: MYELODYSPLASTIC SYNDROME
     Dosage: TOTAL DAILY DOSE: 500 ?G
     Dates: start: 20090202, end: 20090213

REACTIONS (6)
  - ANAPHYLACTIC REACTION [None]
  - DYSPNOEA [None]
  - FLUSHING [None]
  - HYPOAESTHESIA ORAL [None]
  - RESPIRATORY ARREST [None]
  - SYNCOPE [None]
